FAERS Safety Report 6146538-0 (Version None)
Quarter: 2009Q2

REPORT INFORMATION
  Report Type: 
  Country: None (occurrence: None)
  Receive Date: 20090407
  Receipt Date: 20090330
  Transmission Date: 20091009
  Serious: Yes (Other)
  Sender: FDA-Public Use
  Company Number: US-AVENTIS-200817902US

PATIENT
  Sex: Male
  Weight: 70.76 kg

DRUGS (1)
  1. BENZACLIN [Suspect]
     Indication: ROSACEA
     Dosage: DOSE: UNK
     Route: 061
     Dates: start: 20070101, end: 20081001

REACTIONS (8)
  - DYSPNOEA [None]
  - HEART RATE INCREASED [None]
  - HYPERSENSITIVITY [None]
  - HYPOAESTHESIA ORAL [None]
  - LIP SWELLING [None]
  - PALMAR ERYTHEMA [None]
  - PRURITUS [None]
  - PRURITUS GENERALISED [None]
